FAERS Safety Report 4473286-5 (Version None)
Quarter: 2004Q4

REPORT INFORMATION
  Report Type: 
  Country: None (occurrence: None)
  Receive Date: 20041013
  Receipt Date: 20041001
  Transmission Date: 20050328
  Serious: Yes (Other)
  Sender: FDA-Public Use
  Company Number: PHHO2004JP13912

PATIENT
  Age: 77 Year
  Sex: Female
  Weight: 60 kg

DRUGS (8)
  1. DIOVAN [Suspect]
     Dosage: 80 MG, QD
     Route: 048
     Dates: start: 20030327
  2. PLETAL [Concomitant]
     Indication: ANGINA PECTORIS
     Dosage: 200 MG, QD
     Route: 048
     Dates: start: 20031113
  3. AMLODIN [Concomitant]
     Indication: HYPERTENSION
     Dosage: 5 MG, UNK
     Route: 048
     Dates: start: 20030327
  4. DIART [Concomitant]
     Indication: CARDIAC FAILURE CHRONIC
     Dosage: 60 MG, UNK
     Route: 048
     Dates: start: 20030327, end: 20040318
  5. PANTOSIN [Concomitant]
     Indication: CONSTIPATION
     Dosage: 3 G, UNK
     Route: 048
     Dates: start: 20030327, end: 20031113
  6. MAGNESIUM OXIDE [Concomitant]
     Indication: CONSTIPATION
     Dosage: .6 G, UNK
     Route: 048
     Dates: start: 20030327, end: 20031113
  7. FRANDOL [Concomitant]
     Indication: ANGINA PECTORIS
     Dosage: 1 DF, TID
     Dates: start: 20030327
  8. SIGMART [Concomitant]
     Indication: ANGINA PECTORIS
     Dosage: 18 MG, UNK
     Route: 048
     Dates: start: 20030501

REACTIONS (6)
  - ANGINA PECTORIS [None]
  - ANGIOPLASTY [None]
  - ARTERIAL STENOSIS [None]
  - ARTERIAL STENT INSERTION [None]
  - CORONARY ARTERY OCCLUSION [None]
  - CORONARY ARTERY RESTENOSIS [None]
